FAERS Safety Report 5260818-2 (Version None)
Quarter: 2007Q1

REPORT INFORMATION
  Report Type: 
  Country: None (occurrence: None)
  Receive Date: 20070309
  Receipt Date: 20070228
  Transmission Date: 20070707
  Serious: Yes (Hospitalization)
  Sender: FDA-Public Use
  Company Number: TH-GILEAD-2007-0011442

PATIENT
  Age: 26 Year
  Sex: Male
  Weight: 48.85 kg

DRUGS (8)
  1. EMTRICITABINE [Suspect]
     Indication: HIV INFECTION
     Route: 048
     Dates: start: 20070119, end: 20070126
  2. DDI-EC [Suspect]
     Indication: HIV INFECTION
     Route: 048
     Dates: start: 20070119, end: 20070126
  3. ATAZANAVIR SULFATE [Suspect]
     Indication: HIV INFECTION
     Route: 048
     Dates: start: 20070119, end: 20070126
  4. TRIAMCINOLONE [Concomitant]
  5. CLINDAMYCIN [Concomitant]
  6. PRIMAQUINE [Concomitant]
  7. PREDNISOLONE [Concomitant]
  8. VASELINE CREAM [Concomitant]

REACTIONS (1)
  - ENCEPHALITIS [None]
